FAERS Safety Report 4765446-0 (Version None)
Quarter: 2005Q3

REPORT INFORMATION
  Report Type: 
  Country: None (occurrence: None)
  Receive Date: 20050908
  Receipt Date: 20050829
  Transmission Date: 20060218
  Serious: Yes (Death, Other)
  Sender: FDA-Public Use
  Company Number: 2005115239

PATIENT
  Age: 43 Year
  Sex: Male

DRUGS (1)
  1. VIAGRA [Suspect]
     Indication: ILL-DEFINED DISORDER
     Dosage: ORAL
     Route: 048
     Dates: end: 20050801

REACTIONS (7)
  - BLOOD GLUCOSE ABNORMAL [None]
  - CARDIAC FAILURE [None]
  - DYSPNOEA [None]
  - INTENTIONAL MISUSE [None]
  - OVERDOSE [None]
  - SHOCK [None]
  - SYNCOPE [None]
